FAERS Safety Report 9124512 (Version 1)
Quarter: 2013Q1

REPORT INFORMATION
  Report Type: Spontaneous
  Country: US (occurrence: US)
  Receive Date: 20130227
  Receipt Date: 20130227
  Transmission Date: 20140127
  Serious: Yes (Other)
  Sender: FDA-Public Use
  Company Number: CHPA2013US003461

PATIENT
  Age: 77 Year
  Sex: Female

DRUGS (3)
  1. NUPERCAINAL HEMORRHOIDAL/ANES OINTMENT [Suspect]
     Indication: HAEMORRHOIDS
     Dosage: UNK DF, QOD
     Route: 061
     Dates: start: 2005
  2. NUPERCAINAL HEMORRHOIDAL/ANES OINTMENT [Suspect]
     Indication: SKIN IRRITATION
  3. NUPERCAINAL HEMORRHOIDAL/ANES OINTMENT [Suspect]
     Indication: IRRITABLE BOWEL SYNDROME

REACTIONS (10)
  - Loss of consciousness [Recovered/Resolved]
  - Oral herpes [Unknown]
  - Irritable bowel syndrome [Not Recovered/Not Resolved]
  - Head injury [Recovered/Resolved]
  - Fall [Recovered/Resolved]
  - Influenza [Recovered/Resolved]
  - Diarrhoea [Unknown]
  - Therapeutic response unexpected [Unknown]
  - Off label use [Unknown]
  - Expired drug administered [Unknown]
